FAERS Safety Report 7337120-8 (Version None)
Quarter: 2011Q1

REPORT INFORMATION
  Report Type: 
  Country: None (occurrence: None)
  Receive Date: 20110224
  Receipt Date: 20110215
  Transmission Date: 20110831
  Serious: Yes (Other)
  Sender: FDA-Public Use
  Company Number: DKLU1068492

PATIENT
  Age: 14 Year
  Sex: Male

DRUGS (1)
  1. SABRIL [Suspect]
     Indication: CONVULSION

REACTIONS (1)
  - GRAND MAL CONVULSION [None]
